FAERS Safety Report 4944250-4 (Version None)
Quarter: 2006Q1

REPORT INFORMATION
  Report Type: 
  Country: None (occurrence: None)
  Receive Date: 20060309
  Receipt Date: 20060223
  Transmission Date: 20060701
  Serious: Yes (Hospitalization)
  Sender: FDA-Public Use
  Company Number: 2005BI022157

PATIENT
  Age: 53 Year
  Sex: Female

DRUGS (2)
  1. AVONEX [Suspect]
     Indication: MULTIPLE SCLEROSIS
     Dosage: 30 UG;QW;IM
     Route: 030
     Dates: start: 20040201, end: 20051117
  2. METHADONE HCL [Concomitant]

REACTIONS (9)
  - ABNORMAL BEHAVIOUR [None]
  - CYSTITIS [None]
  - DELIRIUM [None]
  - EXTRAPYRAMIDAL DISORDER [None]
  - FEELING ABNORMAL [None]
  - MEMORY IMPAIRMENT [None]
  - PARANOIA [None]
  - POST PROCEDURAL NAUSEA [None]
  - SPINAL OPERATION [None]
